FAERS Safety Report 5082756-0 (Version None)
Quarter: 2006Q3

REPORT INFORMATION
  Report Type: 
  Country: None (occurrence: None)
  Receive Date: 20060814
  Receipt Date: 20060802
  Transmission Date: 20061208
  Serious: Yes (Death, Other)
  Sender: FDA-Public Use
  Company Number: USA-2006-0024215

PATIENT
  Age: 27 Year
  Sex: Male
  Weight: 136.1 kg

DRUGS (1)
  1. OXYCONTIN [Suspect]
     Indication: DRUG USE FOR UNKNOWN INDICATION

REACTIONS (6)
  - ACCIDENTAL OVERDOSE [None]
  - CARDIOMEGALY [None]
  - COMA [None]
  - DRUG TOXICITY [None]
  - PNEUMONIA [None]
  - SUDDEN DEATH [None]
